FAERS Safety Report 9199591 (Version 2)
Quarter: 2013Q4

REPORT INFORMATION
  Report Type: Spontaneous
  Country: US (occurrence: US)
  Receive Date: 20130329
  Receipt Date: 20131007
  Transmission Date: 20140711
  Serious: No
  Sender: FDA-Public Use
  Company Number: US-GLAXOSMITHKLINE-A1009187A

PATIENT
  Age: 51 Year
  Sex: Female

DRUGS (6)
  1. BENLYSTA [Suspect]
     Indication: SYSTEMIC LUPUS ERYTHEMATOSUS
     Dosage: 120MG EVERY 28 DAYS
     Route: 042
     Dates: start: 201209, end: 201307
  2. PREDNISONE [Suspect]
  3. ANTIDEPRESSANT (UNSPECIFIED) [Concomitant]
  4. ZOLPIDEM [Concomitant]
  5. XANAX [Concomitant]
  6. PROGESTERONE [Concomitant]

REACTIONS (11)
  - Insomnia [Not Recovered/Not Resolved]
  - Weight increased [Unknown]
  - White blood cell count decreased [Not Recovered/Not Resolved]
  - Oropharyngeal pain [Recovered/Resolved]
  - Pyrexia [Recovered/Resolved]
  - Depression [Recovering/Resolving]
  - Headache [Unknown]
  - Vision blurred [Unknown]
  - Arthralgia [Unknown]
  - Drug withdrawal syndrome [Unknown]
  - Decreased appetite [Unknown]
